FAERS Safety Report 4290477-7 (Version None)
Quarter: 2004Q1

REPORT INFORMATION
  Report Type: 
  Country: None (occurrence: None)
  Receive Date: 20040126
  Receipt Date: 20030904
  Transmission Date: 20041129
  Serious: No
  Sender: FDA-Public Use
  Company Number: USA030638870

PATIENT
  Age: 77 Year
  Sex: Female

DRUGS (3)
  1. FORTEO [Suspect]
     Indication: OSTEOPOROSIS
     Dosage: 20 UG/DAY
     Dates: start: 20030602, end: 20030831
  2. SYNTHROID [Concomitant]
  3. NEXIUM [Concomitant]

REACTIONS (13)
  - ARTHRALGIA [None]
  - ASTHENIA [None]
  - BREAST ATROPHY [None]
  - DIARRHOEA [None]
  - DIZZINESS [None]
  - FLUID RETENTION [None]
  - GOUT [None]
  - HEADACHE [None]
  - HYPERHIDROSIS [None]
  - HYPERTROPHY BREAST [None]
  - NAUSEA [None]
  - PAIN [None]
  - PALPITATIONS [None]
